FAERS Safety Report 9790824 (Version 2)
Quarter: 2014Q1

REPORT INFORMATION
  Report Type: Report from Study
  Country: NL (occurrence: NL)
  Receive Date: 20131231
  Receipt Date: 20140109
  Transmission Date: 20141002
  Serious: Yes (Death)
  Sender: FDA-Public Use
  Company Number: PHHY2013NL153480

PATIENT
  Age: 75 Year
  Sex: Male

DRUGS (3)
  1. ZOMETA [Suspect]
     Indication: PROSTATE CANCER METASTATIC
     Dosage: 4 MG, ONCE EVERY 4 WEEKS
     Route: 042
  2. ZOMETA [Suspect]
     Dosage: 4 MG, ONCE EVERY 4 WEEKS
     Dates: start: 20131120
  3. ZOMETA [Suspect]
     Dosage: 4 MG, ONCE EVERY 4 WEEKS
     Dates: start: 20131218

REACTIONS (2)
  - Prostate cancer metastatic [Fatal]
  - Malignant neoplasm progression [Fatal]
